FAERS Safety Report 5129258-0 (Version None)
Quarter: 2006Q4

REPORT INFORMATION
  Report Type: 
  Country: None (occurrence: None)
  Receive Date: 20061011
  Receipt Date: 20060929
  Transmission Date: 20070319
  Serious: No
  Sender: FDA-Public Use
  Company Number: 2006-148524-NL

PATIENT
  Age: 65 Year
  Sex: Male

DRUGS (2)
  1. DANAPAROID SODIUM [Suspect]
     Dosage: 3300 ANTI_XA BID SUBCUTANEOUS
     Route: 058
     Dates: start: 20060923, end: 20060924
  2. HEPARIN [Concomitant]

REACTIONS (3)
  - ANAPHYLACTIC SHOCK [None]
  - CROSS SENSITIVITY REACTION [None]
  - HEPARIN-INDUCED THROMBOCYTOPENIA [None]
